FAERS Safety Report 16234363 (Version 11)
Quarter: 2020Q2

REPORT INFORMATION
  Report Type: Report from Study
  Country: DE (occurrence: DE)
  Receive Date: 20190424
  Receipt Date: 20200603
  Transmission Date: 20200713
  Serious: Yes (Hospitalization, Other)
  Sender: FDA-Public Use
  Company Number: PHHY2019DE091376

PATIENT
  Age: 65 Year
  Sex: Female
  Weight: 47 kg

DRUGS (2)
  1. KISQALI [Suspect]
     Active Substance: RIBOCICLIB
     Indication: BREAST CANCER METASTATIC
     Dosage: 600 MG, QD (1-21)
     Route: 048
     Dates: start: 20180730
  2. LETROZOLE. [Suspect]
     Active Substance: LETROZOLE
     Indication: BREAST CANCER METASTATIC
     Dosage: 2.5 MG, QD
     Route: 048
     Dates: start: 20180730

REACTIONS (9)
  - Pyrexia [Recovered/Resolved]
  - Bronchitis [Recovered/Resolved]
  - Depression [Recovered/Resolved]
  - Dizziness [Recovered/Resolved]
  - White blood cell count decreased [Unknown]
  - Pneumonia chlamydial [Recovered/Resolved]
  - Metabolic alkalosis [Recovered/Resolved]
  - Myalgia [Not Recovered/Not Resolved]
  - Bronchitis [Recovered/Resolved]

NARRATIVE: CASE EVENT DATE: 20190326
